FAERS Safety Report 6012649-3 (Version None)
Quarter: 2008Q4

REPORT INFORMATION
  Report Type: 
  Country: None (occurrence: None)
  Receive Date: 20081218
  Receipt Date: 20081205
  Transmission Date: 20090506
  Serious: Yes (Hospitalization)
  Sender: FDA-Public Use
  Company Number: IT-GENENTECH-273586

PATIENT
  Sex: Female

DRUGS (3)
  1. BEVACIZUMAB [Suspect]
     Indication: BREAST CANCER
     Dosage: UNK
     Route: 042
     Dates: start: 20081021
  2. CAPECITABINE [Suspect]
     Indication: BREAST CANCER
     Dosage: UNK
     Route: 048
     Dates: start: 20081021
  3. DOCETAXEL [Suspect]
     Indication: BREAST CANCER
     Dosage: UNK
     Dates: start: 20081021

REACTIONS (2)
  - ANAEMIA [None]
  - THROMBOCYTOPENIA [None]
